FAERS Safety Report 16430193 (Version 2)
Quarter: 2019Q3

REPORT INFORMATION
  Report Type: Spontaneous
  Country: JP (occurrence: JP)
  Receive Date: 20190614
  Receipt Date: 20190705
  Transmission Date: 20191004
  Serious: Yes (Hospitalization)
  Sender: FDA-Public Use
  Company Number: JP-ELI_LILLY_AND_COMPANY-JP201906003363

PATIENT
  Age: 84 Year
  Sex: Female

DRUGS (16)
  1. OLMESARTAN [Concomitant]
     Active Substance: OLMESARTAN
  2. FUROSEMIDE. [Concomitant]
     Active Substance: FUROSEMIDE
  3. NOIDOUBLE [Concomitant]
     Active Substance: SPIRONOLACTONE
  4. MAGMITT [Concomitant]
     Active Substance: MAGNESIUM OXIDE
  5. GLUBES [Concomitant]
     Active Substance: MITIGLINIDE CALCIUM HYDRATE\VOGLIBOSE
     Indication: TYPE 2 DIABETES MELLITUS
     Dosage: UNK
     Dates: start: 20190520
  6. MOSAPRIDE CITRATE [Concomitant]
     Active Substance: MOSAPRIDE CITRATE
  7. TRIAZOLAM. [Concomitant]
     Active Substance: TRIAZOLAM
  8. TRULICITY [Suspect]
     Active Substance: DULAGLUTIDE
     Indication: TYPE 2 DIABETES MELLITUS
     Dosage: 0.75 MG, WEEKLY (1/W)
     Route: 058
     Dates: start: 20190520
  9. NIFEDIPINE. [Concomitant]
     Active Substance: NIFEDIPINE
  10. FAMOTIDINE. [Concomitant]
     Active Substance: FAMOTIDINE
  11. CARVEDILOL. [Concomitant]
     Active Substance: CARVEDILOL
  12. AMOXAN [Concomitant]
     Active Substance: AMOXAPINE
  13. LANTUS XR [Concomitant]
     Active Substance: INSULIN GLARGINE
     Indication: TYPE 2 DIABETES MELLITUS
     Dosage: UNK
     Dates: start: 20190520
  14. ARGAMATE [Concomitant]
     Active Substance: CALCIUM POLYSTYRENE SULFONATE
  15. FEBURIC [Concomitant]
     Active Substance: FEBUXOSTAT
  16. RISPERIDONE. [Concomitant]
     Active Substance: RISPERIDONE

REACTIONS (1)
  - Cerebellar haemorrhage [Unknown]

NARRATIVE: CASE EVENT DATE: 20190603
